FAERS Safety Report 6506096-5 (Version None)
Quarter: 2009Q4

REPORT INFORMATION
  Report Type: 
  Country: None (occurrence: None)
  Receive Date: 20091218
  Receipt Date: 20091210
  Transmission Date: 20100525
  Serious: No
  Sender: FDA-Public Use
  Company Number: US-B.I. PHARMACEUTICALS,INC./RIDGEFIELD-2009-BP-13119BP

PATIENT
  Sex: Female

DRUGS (10)
  1. SPIRIVA [Suspect]
     Indication: CHRONIC OBSTRUCTIVE PULMONARY DISEASE
     Dosage: 18 MCG
     Route: 055
     Dates: start: 20070101
  2. SPIRIVA [Suspect]
     Indication: DYSPNOEA
  3. METOPROLOL TARTRATE [Concomitant]
     Indication: HYPERTENSION
  4. METOPROLOL TARTRATE [Concomitant]
     Indication: BLOOD PRESSURE MANAGEMENT
  5. ASPIRIN [Concomitant]
     Indication: HYPERTENSION
  6. ASPIRIN [Concomitant]
     Indication: BLOOD PRESSURE MANAGEMENT
  7. BENAZEPRIL HYDROCHLORIDE [Concomitant]
     Indication: HYPERTENSION
  8. BENAZEPRIL HYDROCHLORIDE [Concomitant]
     Indication: BLOOD PRESSURE MANAGEMENT
  9. ATROVENT [Concomitant]
  10. NAPROXEN [Concomitant]
     Indication: PAIN IN EXTREMITY

REACTIONS (1)
  - DYSPNOEA [None]
